FAERS Safety Report 7426825-6 (Version None)
Quarter: 2011Q2

REPORT INFORMATION
  Report Type: 
  Country: None (occurrence: None)
  Receive Date: 20110415
  Receipt Date: 20110415
  Transmission Date: 20111010
  Serious: Yes (Other)
  Sender: FDA-Public Use
  Company Number: None

PATIENT
  Age: 17 Year
  Sex: Female
  Weight: 45.3597 kg

DRUGS (1)
  1. CASTILE SOAP CONCENTRATE NA TRIAD [Suspect]
     Indication: BOWEL PREPARATION
     Dosage: 2 PACKETS EVERY OTHER DAY OTHER

REACTIONS (6)
  - ABNORMAL FAECES [None]
  - CALCULUS BLADDER [None]
  - PYREXIA [None]
  - PAIN [None]
  - URINARY TRACT INFECTION [None]
  - DERMAL CYST [None]
